FAERS Safety Report 6413097-4 (Version None)
Quarter: 2009Q4

REPORT INFORMATION
  Report Type: 
  Country: None (occurrence: None)
  Receive Date: 20091022
  Receipt Date: 20091022
  Transmission Date: 20100525
  Serious: Yes (Life-Threatening, Other)
  Sender: FDA-Public Use
  Company Number: None

PATIENT
  Sex: Male
  Weight: 72.5755 kg

DRUGS (2)
  1. GABAPENTIN [Suspect]
     Indication: INTERVERTEBRAL DISC DISORDER
     Dosage: 1 CAP TID 3 TIMES DAILY ORAL
     Route: 048
     Dates: start: 20090828, end: 20090831
  2. GABAPENTIN [Suspect]
     Indication: INTERVERTEBRAL DISC DISORDER
     Dosage: 1 CAP TID 3 TIMES DAILY ORAL
     Route: 048
     Dates: start: 20090903, end: 20090908

REACTIONS (1)
  - UNEVALUABLE EVENT [None]
